FAERS Safety Report 17517310 (Version 4)
Quarter: 2020Q2

REPORT INFORMATION
  Report Type: Spontaneous
  Country: US (occurrence: US)
  Receive Date: 20200309
  Receipt Date: 20200526
  Transmission Date: 20200713
  Serious: Yes (Other)
  Sender: FDA-Public Use
  Company Number: US-SA-2020SA059251

PATIENT
  Age: 40 Year
  Sex: Male

DRUGS (1)
  1. APIDRA SOLOSTAR [Suspect]
     Active Substance: INSULIN GLULISINE
     Indication: TYPE 1 DIABETES MELLITUS
     Dosage: SLIDING SCALE, QD
     Route: 065

REACTIONS (2)
  - Diabetes mellitus inadequate control [Unknown]
  - Product contamination with body fluid [Unknown]
